FAERS Safety Report 7564662-2 (Version None)
Quarter: 2011Q2

REPORT INFORMATION
  Report Type: 
  Country: None (occurrence: None)
  Receive Date: 20110622
  Receipt Date: 20100930
  Transmission Date: 20111010
  Serious: Yes (Other)
  Sender: FDA-Public Use
  Company Number: US-MYLANLABS-2010S1014342

PATIENT
  Age: 23 Year
  Sex: Female

DRUGS (2)
  1. CLOZAPINE [Suspect]
     Dates: start: 20100801, end: 20100801
  2. CLOZAPINE [Suspect]
     Dates: end: 20100801

REACTIONS (1)
  - GRANULOCYTOPENIA [None]
